FAERS Safety Report 6744363-0 (Version None)
Quarter: 2010Q2

REPORT INFORMATION
  Report Type: 
  Country: None (occurrence: None)
  Receive Date: 20100527
  Receipt Date: 20100516
  Transmission Date: 20101027
  Serious: Yes (Other)
  Sender: FDA-Public Use
  Company Number: US-AMGEN-KDL412824

PATIENT
  Sex: Female

DRUGS (5)
  1. ENBREL [Suspect]
     Indication: RHEUMATOID ARTHRITIS
     Route: 058
     Dates: start: 20000901
  2. ENBREL [Suspect]
     Indication: PSORIATIC ARTHROPATHY
  3. ENBREL [Suspect]
     Indication: PSORIASIS
  4. REMICADE [Concomitant]
     Dates: start: 20080401, end: 20090101
  5. METHOTREXATE [Concomitant]

REACTIONS (10)
  - ARTHROPOD BITE [None]
  - BLOOD PRESSURE INCREASED [None]
  - DYSPNOEA [None]
  - ERYTHEMA [None]
  - GROIN PAIN [None]
  - HEPATIC CIRRHOSIS [None]
  - LYMPH NODE PAIN [None]
  - OPEN WOUND [None]
  - PSORIASIS [None]
  - WOUND HAEMORRHAGE [None]
